FAERS Safety Report 18436213 (Version 1)
Quarter: 2020Q4

REPORT INFORMATION
  Report Type: Spontaneous
  Country: JP (occurrence: JP)
  Receive Date: 20201028
  Receipt Date: 20201028
  Transmission Date: 20210114
  Serious: Yes (Death)
  Sender: FDA-Public Use
  Company Number: JP-COLLEGIUM PHARMACEUTICAL, INC.-2020CGM00337

PATIENT
  Age: 74 Year
  Sex: Female

DRUGS (1)
  1. NUCYNTA ER [Suspect]
     Active Substance: TAPENTADOL HYDROCHLORIDE
     Indication: NEOPLASM MALIGNANT
     Dosage: 200 MG, 2X/DAY
     Route: 048

REACTIONS (2)
  - Malignant neoplasm progression [Fatal]
  - Death [Fatal]
